FAERS Safety Report 7314886-4 (Version None)
Quarter: 2011Q1

REPORT INFORMATION
  Report Type: 
  Country: None (occurrence: None)
  Receive Date: 20110218
  Receipt Date: 20110218
  Transmission Date: 20110831
  Serious: Yes (Hospitalization)
  Sender: FDA-Public Use
  Company Number: None

PATIENT
  Sex: Female
  Weight: 87.9978 kg

DRUGS (2)
  1. BACTRIM [Suspect]
     Indication: FURUNCLE
     Dosage: PO
     Route: 048
     Dates: start: 20110202, end: 20110207
  2. BACTRIM [Suspect]
     Indication: SKIN INFECTION
     Dosage: PO
     Route: 048
     Dates: start: 20110202, end: 20110207

REACTIONS (2)
  - SKIN INFECTION [None]
  - ASTHENIA [None]
